FAERS Safety Report 5918019-8 (Version None)
Quarter: 2008Q4

REPORT INFORMATION
  Report Type: 
  Country: None (occurrence: None)
  Receive Date: 20081014
  Receipt Date: 20081002
  Transmission Date: 20090506
  Serious: Yes (Other)
  Sender: FDA-Public Use
  Company Number: AU-PFIZER INC-2008073178

PATIENT
  Age: 30 Year
  Sex: Male

DRUGS (1)
  1. CHANTIX [Suspect]
     Indication: SMOKING CESSATION THERAPY

REACTIONS (6)
  - ANXIETY [None]
  - IMPAIRED WORK ABILITY [None]
  - INSOMNIA [None]
  - NEUROSIS [None]
  - PARANOIA [None]
  - PSYCHOTIC DISORDER [None]
